FAERS Safety Report 4476826-5 (Version None)
Quarter: 2004Q4

REPORT INFORMATION
  Report Type: 
  Country: None (occurrence: None)
  Receive Date: 20041013
  Receipt Date: 20040923
  Transmission Date: 20050328
  Serious: Yes (Life-Threatening, Hospitalization)
  Sender: FDA-Public Use
  Company Number: USA040979339

PATIENT
  Age: 35 Year
  Sex: Female

DRUGS (6)
  1. HUMULIN R [Suspect]
     Indication: INSULIN RESISTANCE
  2. HUMULIN N [Suspect]
     Indication: DIABETES MELLITUS
  3. ALUPENT [Concomitant]
  4. CLINORIL [Concomitant]
  5. NEXIUM [Concomitant]
  6. CLARITIN [Concomitant]

REACTIONS (9)
  - ARTERIAL RUPTURE [None]
  - BLOOD GLUCOSE INCREASED [None]
  - CARDIAC ARREST [None]
  - DRUG EXPOSURE DURING PREGNANCY [None]
  - DRUG EXPOSURE VIA BREAST MILK [None]
  - LYME DISEASE [None]
  - PANCREATIC DISORDER [None]
  - SEPSIS [None]
  - VISUAL ACUITY REDUCED [None]
